FAERS Safety Report 21064398 (Version 16)
Quarter: 2023Q4

REPORT INFORMATION
  Report Type: Spontaneous
  Country: GB (occurrence: GB)
  Receive Date: 20220711
  Receipt Date: 20231005
  Transmission Date: 20240110
  Serious: Yes (Hospitalization, Other)
  Sender: FDA-Public Use
  Company Number: GB-MYLANLABS-2022M1051419

PATIENT
  Age: 56 Year
  Sex: Male

DRUGS (3)
  1. CLOZARIL [Suspect]
     Active Substance: CLOZAPINE
     Indication: Schizophrenia
     Dosage: 350 MILLIGRAM, QD (50 MILLIGRAM MORNING, 350 MILLIGRAM NOCTE)
     Route: 048
     Dates: start: 20160504
  2. PAROXETINE [Concomitant]
     Active Substance: PAROXETINE
     Indication: Depressed mood
     Dosage: 20 MILLIGRAM, QD
     Route: 048
  3. VALPROATE SODIUM [Concomitant]
     Active Substance: VALPROATE SODIUM
     Indication: Affective disorder
     Dosage: 600 MILLIGRAM, QD
     Route: 048

REACTIONS (19)
  - Neoplasm malignant [Unknown]
  - Skin cancer [Unknown]
  - Neutropenic sepsis [Recovering/Resolving]
  - Hypochromasia [Recovering/Resolving]
  - Red blood cell count decreased [Recovering/Resolving]
  - Haematocrit decreased [Recovering/Resolving]
  - Leukopenia [Recovered/Resolved]
  - Neutropenia [Recovered/Resolved]
  - Myocarditis [Unknown]
  - Haemoglobin decreased [Recovering/Resolving]
  - Eosinophilia [Recovered/Resolved]
  - Platelet count increased [Recovered/Resolved]
  - Off label use [Unknown]
  - Emotional distress [Unknown]
  - Feeling of despair [Unknown]
  - Loss of personal independence in daily activities [Unknown]
  - Quality of life decreased [Unknown]
  - Eosinophil count decreased [Unknown]
  - Neutrophil count increased [Unknown]

NARRATIVE: CASE EVENT DATE: 20220531
